FAERS Safety Report 8904940 (Version 2)
Quarter: 2015Q3

REPORT INFORMATION
  Report Type: Spontaneous
  Country: US (occurrence: US)
  Receive Date: 20121112
  Receipt Date: 20150717
  Transmission Date: 20151125
  Serious: Yes (Death, Other)
  Sender: FDA-Public Use
  Company Number: US-SANOFI-AVENTIS-2012SA082490

PATIENT
  Sex: Female

DRUGS (5)
  1. TYLENOL [Concomitant]
     Active Substance: ACETAMINOPHEN
  2. PLAVIX [Suspect]
     Active Substance: CLOPIDOGREL BISULFATE
     Indication: CEREBROVASCULAR ACCIDENT
     Route: 065
     Dates: start: 20080502, end: 20080505
  3. ZOCOR [Concomitant]
     Active Substance: SIMVASTATIN
  4. LOVENOX [Concomitant]
     Active Substance: ENOXAPARIN SODIUM
  5. ASPIRIN. [Concomitant]
     Active Substance: ASPIRIN
     Route: 065
     Dates: end: 20080501

REACTIONS (3)
  - Gastrointestinal haemorrhage [Unknown]
  - Death [Fatal]
  - Cerebral haemorrhage [Unknown]
